FAERS Safety Report 21216811 (Version 1)
Quarter: 2022Q3

REPORT INFORMATION
  Report Type: Spontaneous
  Country: US (occurrence: None)
  Receive Date: 20220815
  Receipt Date: 20220815
  Transmission Date: 20221027
  Serious: Yes (Death)
  Sender: FDA-Public Use
  Company Number: None

PATIENT
  Age: 83 Year
  Sex: Male
  Weight: 94.39 kg

DRUGS (16)
  1. LENALIDOMIDE [Suspect]
     Active Substance: LENALIDOMIDE
     Indication: Plasma cell myeloma
     Dosage: OTHER FREQUENCY : 21DON7DOFF;?
     Route: 048
  2. ACETAMINOPHEN [Concomitant]
  3. ACYCLOVIR [Concomitant]
  4. ALLOPURINOL [Concomitant]
     Active Substance: ALLOPURINOL
  5. ASCORBICV ACID [Concomitant]
  6. ATORVASTATIN [Concomitant]
  7. BACTRIM DS [Concomitant]
  8. FERROUS SULFATE [Concomitant]
  9. FLONASE [Concomitant]
  10. LASIX [Concomitant]
     Active Substance: FUROSEMIDE
  11. LIDOCAINE [Concomitant]
  12. MORPHINE [Concomitant]
  13. PANTOPRAZOLE [Concomitant]
  14. SEROQUEL [Concomitant]
     Active Substance: QUETIAPINE FUMARATE
  15. SODIUM CHLORIDE [Concomitant]
  16. XARELTO [Concomitant]

REACTIONS (1)
  - Death [None]
